FAERS Safety Report 12574667 (Version 2)
Quarter: 2016Q3

REPORT INFORMATION
  Report Type: Spontaneous
  Country: NL (occurrence: NL)
  Receive Date: 20160720
  Receipt Date: 20160804
  Transmission Date: 20161109
  Serious: Yes (Other)
  Sender: FDA-Public Use
  Company Number: NL-PFIZER INC-2016351203

PATIENT
  Age: 35 Year
  Sex: Female
  Weight: 71 kg

DRUGS (5)
  1. PROVERA [Suspect]
     Active Substance: MEDROXYPROGESTERONE ACETATE
     Dosage: 20 MG, 2X/DAY
     Dates: end: 20160713
  2. SOTALOL. [Concomitant]
     Active Substance: SOTALOL
     Dosage: 80 MG, 3X/DAY
     Route: 048
     Dates: start: 201604
  3. EUTHYROX [Concomitant]
     Active Substance: LEVOTHYROXINE SODIUM
     Dosage: 112 UG, 1X/DAY
     Route: 048
     Dates: start: 2014
  4. PROVERA [Suspect]
     Active Substance: MEDROXYPROGESTERONE ACETATE
     Indication: CONTRACEPTION
     Dosage: 10 MG, 2X/DAY
     Route: 048
     Dates: start: 20160604
  5. SOTALOL. [Concomitant]
     Active Substance: SOTALOL
     Dosage: 80 MG, 2X/DAY
     Route: 048
     Dates: start: 2013, end: 201603

REACTIONS (2)
  - Arrhythmia [Recovered/Resolved with Sequelae]
  - Product use issue [Recovered/Resolved]

NARRATIVE: CASE EVENT DATE: 20160604
